FAERS Safety Report 9659899 (Version 1)
Quarter: 2013Q4

REPORT INFORMATION
  Report Type: Spontaneous
  Country: US (occurrence: US)
  Receive Date: 20131031
  Receipt Date: 20131031
  Transmission Date: 20140711
  Serious: Yes (Other)
  Sender: FDA-Public Use
  Company Number: US-SUN PHARMACEUTICAL INDUSTRIES LTD-2013SUN04926

PATIENT
  Age: 3 Year
  Sex: Male

DRUGS (1)
  1. TRAMADOL HCL 50MG TABLET [Suspect]
     Indication: PRODUCT USED FOR UNKNOWN INDICATION
     Route: 065

REACTIONS (10)
  - False positive investigation result [Unknown]
  - Hypokinesia [Unknown]
  - Respiration abnormal [Unknown]
  - Ataxia [Unknown]
  - Protrusion tongue [Unknown]
  - Overdose [Unknown]
  - Vomiting [Unknown]
  - Unresponsive to stimuli [Unknown]
  - Somnolence [Unknown]
  - Loss of consciousness [Unknown]
